FAERS Safety Report 4925386-0 (Version None)
Quarter: 2006Q1

REPORT INFORMATION
  Report Type: 
  Country: None (occurrence: None)
  Receive Date: 20060228
  Receipt Date: 20050211
  Transmission Date: 20060701
  Serious: No
  Sender: FDA-Public Use
  Company Number: US-GLAXOSMITHKLINE-A0545173A

PATIENT
  Age: 22 Year
  Sex: Male

DRUGS (3)
  1. LAMICTAL [Suspect]
     Indication: EPILEPSY
     Dosage: 400MG TWICE PER DAY
     Route: 048
     Dates: start: 19970101
  2. TOPAMAX [Concomitant]
  3. IMIPRAMINE [Concomitant]
     Route: 065

REACTIONS (1)
  - SKIN ODOUR ABNORMAL [None]
